FAERS Safety Report 8503539-2 (Version None)
Quarter: 2012Q3

REPORT INFORMATION
  Report Type: 
  Country: None (occurrence: None)
  Receive Date: 20120711
  Receipt Date: 20120706
  Transmission Date: 20120928
  Serious: No
  Sender: FDA-Public Use
  Company Number: US-PFIZER INC-2012142223

PATIENT
  Sex: Male

DRUGS (2)
  1. SUTENT [Suspect]
     Indication: RENAL CANCER
     Dosage: 50 MG, UNK
     Route: 048
     Dates: start: 20120326, end: 20120601
  2. SUTENT [Suspect]
     Indication: RENAL CANCER METASTATIC
     Dosage: 37.5 MG, 1X/DAY
     Route: 048
     Dates: start: 20120601

REACTIONS (6)
  - EYE SWELLING [None]
  - LACRIMATION INCREASED [None]
  - ORAL PAIN [None]
  - GLOSSODYNIA [None]
  - FATIGUE [None]
  - DYSGEUSIA [None]
